FAERS Safety Report 6396706-8 (Version None)
Quarter: 2009Q4

REPORT INFORMATION
  Report Type: 
  Country: None (occurrence: None)
  Receive Date: 20091012
  Receipt Date: 20090929
  Transmission Date: 20100525
  Serious: Yes (Other)
  Sender: FDA-Public Use
  Company Number: DE-AMGEN-QUU366734

PATIENT
  Age: 50 Year
  Sex: Male

DRUGS (2)
  1. NEULASTA [Suspect]
     Indication: CHEMOTHERAPY
     Route: 065
     Dates: start: 20090918
  2. UNSPECIFIED ANTINEOPLASTIC AGENT [Concomitant]
     Dates: start: 20090915

REACTIONS (2)
  - THERAPEUTIC RESPONSE DELAYED [None]
  - WHITE BLOOD CELL COUNT DECREASED [None]
